FAERS Safety Report 20037622 (Version 1)
Quarter: 2021Q4

REPORT INFORMATION
  Report Type: Spontaneous
  Country: DE (occurrence: None)
  Receive Date: 20211105
  Receipt Date: 20211105
  Transmission Date: 20220303
  Serious: Yes (Hospitalization)
  Sender: FDA-Public Use
  Company Number: DE-FRESENIUS KABI-FK202111984

PATIENT
  Age: 81 Year
  Sex: Male

DRUGS (3)
  1. SODIUM CHLORIDE [Suspect]
     Active Substance: SODIUM CHLORIDE
     Indication: Therapeutic procedure
     Dosage: APPROXIMATELY, 70L OF SODIUM CHLORIDE 0.9 PERCENT WAS USED IN TOTAL AS RINSING FLUID FOR ENUCLEATION
     Route: 065
  2. NOREPINEPHRINE [Concomitant]
     Active Substance: NOREPINEPHRINE
     Indication: Cerebral hypoperfusion
     Route: 065
  3. NOREPINEPHRINE [Concomitant]
     Active Substance: NOREPINEPHRINE
     Indication: Blood pressure decreased

REACTIONS (1)
  - Acidosis hyperchloraemic [Recovered/Resolved]
